FAERS Safety Report 9828899 (Version 3)
Quarter: 2015Q2

REPORT INFORMATION
  Report Type: Report from Study
  Country: JP (occurrence: JP)
  Receive Date: 20140118
  Receipt Date: 20150615
  Transmission Date: 20150821
  Serious: Yes (Hospitalization, Other)
  Sender: FDA-Public Use
  Company Number: JP-ABBVIE-12P-087-0993192-00

PATIENT
  Age: 71 Year
  Sex: Male
  Weight: 43 kg

DRUGS (14)
  1. PREDNISOLONE. [Concomitant]
     Active Substance: PREDNISOLONE
     Dates: start: 20120829, end: 20120909
  2. PREDNISOLONE. [Concomitant]
     Active Substance: PREDNISOLONE
     Route: 048
     Dates: end: 20120828
  3. PREDNISOLONE. [Concomitant]
     Active Substance: PREDNISOLONE
     Dates: start: 200910
  4. BUCILLAMINE [Concomitant]
     Active Substance: BUCILLAMINE
     Indication: RHEUMATOID ARTHRITIS
     Dates: start: 200910, end: 20121029
  5. FOLIC ACID. [Concomitant]
     Active Substance: FOLIC ACID
     Indication: PROPHYLAXIS
     Route: 048
     Dates: end: 20121107
  6. PREDNISOLONE. [Concomitant]
     Active Substance: PREDNISOLONE
     Indication: RHEUMATOID ARTHRITIS
     Route: 048
     Dates: start: 20120910, end: 20121107
  7. ETODOLAC. [Concomitant]
     Active Substance: ETODOLAC
     Indication: RHEUMATOID ARTHRITIS
     Route: 048
  8. ETODOLAC. [Concomitant]
     Active Substance: ETODOLAC
     Dates: start: 2009
  9. HUMIRA [Suspect]
     Active Substance: ADALIMUMAB
     Indication: RHEUMATOID ARTHRITIS
     Route: 058
     Dates: start: 20120730, end: 20120924
  10. MECOBALAMIN [Concomitant]
     Active Substance: METHYLCOBALAMIN
     Indication: LUMBAR SPINAL STENOSIS
     Route: 048
     Dates: start: 20120829
  11. MECOBALAMIN [Concomitant]
     Active Substance: METHYLCOBALAMIN
     Dates: start: 201209
  12. FAMOTIDINE. [Concomitant]
     Active Substance: FAMOTIDINE
     Indication: PROPHYLAXIS
     Route: 048
     Dates: start: 2009
  13. METHOTREXATE SODIUM. [Concomitant]
     Active Substance: METHOTREXATE SODIUM
     Indication: RHEUMATOID ARTHRITIS
     Dates: start: 200907, end: 20121029
  14. FOLIC ACID. [Concomitant]
     Active Substance: FOLIC ACID
     Dates: start: 2009

REACTIONS (2)
  - Tendon rupture [Unknown]
  - Organising pneumonia [Recovering/Resolving]

NARRATIVE: CASE EVENT DATE: 20121001
